FAERS Safety Report 9887151 (Version 1)
Quarter: 2014Q1

REPORT INFORMATION
  Report Type: Spontaneous
  Country: US (occurrence: US)
  Receive Date: 20140211
  Receipt Date: 20140211
  Transmission Date: 20141002
  Serious: Yes (Other)
  Sender: FDA-Public Use
  Company Number: US-BIOGENIDEC-2014BI012259

PATIENT
  Sex: Male

DRUGS (4)
  1. TECFIDERA [Suspect]
     Indication: PRODUCT USED FOR UNKNOWN INDICATION
  2. AVONEX [Concomitant]
     Indication: MULTIPLE SCLEROSIS
     Route: 030
  3. TYSABRI [Concomitant]
     Indication: MULTIPLE SCLEROSIS
     Route: 042
     Dates: start: 20090417, end: 20110601
  4. TYSABRI [Concomitant]
     Indication: MULTIPLE SCLEROSIS
     Route: 042
     Dates: start: 20131227

REACTIONS (10)
  - Neoplasm malignant [Unknown]
  - Adverse drug reaction [Unknown]
  - Depressed mood [Unknown]
  - Flushing [Unknown]
  - Temperature intolerance [Unknown]
  - Asthenia [Unknown]
  - Limb injury [Unknown]
  - Memory impairment [Unknown]
  - Cognitive disorder [Unknown]
  - Gait disturbance [Unknown]
